FAERS Safety Report 9569160 (Version 3)
Quarter: 2014Q1

REPORT INFORMATION
  Report Type: Spontaneous
  Country: US (occurrence: US)
  Receive Date: 20130930
  Receipt Date: 20140303
  Transmission Date: 20141002
  Serious: Yes (Other)
  Sender: FDA-Public Use
  Company Number: US-AMGEN-USASP2013047993

PATIENT
  Age: 62 Year
  Sex: Female
  Weight: 94.79 kg

DRUGS (15)
  1. ENBREL [Suspect]
     Indication: RHEUMATOID ARTHRITIS
     Dosage: 50 MG, QWK
     Route: 058
     Dates: start: 201304
  2. PROCRIT [Concomitant]
     Dosage: 10000 ML, UNK
     Route: 058
  3. METHOTREXATE [Concomitant]
     Indication: RHEUMATOID ARTHRITIS
     Dosage: 2.5 MG, QWK
     Route: 048
  4. METHOTREXATE [Concomitant]
     Dosage: 8 MG, QWK
  5. ENALAPRIL [Concomitant]
     Dosage: 5 MG, UNK
     Route: 048
  6. METFORMIN [Concomitant]
     Dosage: 850 MG, UNK
     Route: 048
  7. LISINOPRIL [Concomitant]
     Dosage: 5 MG, UNK
     Route: 048
  8. SIMVASTATIN [Concomitant]
     Dosage: 5 MG, UNK
     Route: 048
  9. MULTIVITAMINS, PLAIN [Concomitant]
     Dosage: UNK
     Route: 048
  10. VITAMIN D                          /00107901/ [Concomitant]
     Dosage: 1000 UNIT, UNK
     Route: 048
  11. SILVADENE [Concomitant]
     Dosage: 1% EX, UNK
  12. TYLENOL                            /00020001/ [Concomitant]
     Dosage: 500 MG, UNK
     Route: 048
  13. IRON [Concomitant]
     Dosage: UNK
     Route: 048
  14. BACITRACIN OPHTHALMIC [Concomitant]
     Dosage: UNK
     Route: 047
  15. PREDNISONE [Concomitant]
     Dosage: 5 MG, HS
     Route: 048

REACTIONS (10)
  - Cellulitis [Recovering/Resolving]
  - Furuncle [Recovering/Resolving]
  - Local swelling [Unknown]
  - Arthralgia [Unknown]
  - Nodule [Unknown]
  - Rash [Recovered/Resolved]
  - Musculoskeletal pain [Recovered/Resolved]
  - Pain [Recovered/Resolved]
  - Myalgia [Recovered/Resolved]
  - Rheumatoid nodule [Recovering/Resolving]
